FAERS Safety Report 8062276-1 (Version None)
Quarter: 2012Q1

REPORT INFORMATION
  Report Type: 
  Country: None (occurrence: None)
  Receive Date: 20120113
  Receipt Date: 20120103
  Transmission Date: 20120608
  Serious: Yes (Life-Threatening, Hospitalization)
  Sender: FDA-Public Use
  Company Number: AUR-APL-2009-00055

PATIENT
  Age: 29 Year
  Sex: Male

DRUGS (5)
  1. CETIRIZINE (CETIRIZINE FILM-COATED TABLETS) (CETIRIZINE) [Concomitant]
  2. BECONASE [Concomitant]
  3. IBUPROFEN TABLETS [Suspect]
     Indication: ABDOMINAL PAIN
     Dosage: 400 MG (UNKNOWN, THREE TIMES A DAY), ORAL
     Route: 048
     Dates: start: 20090506, end: 20090906
  4. CITALOPRAM HYDROBROMIDE [Suspect]
     Indication: DEPRESSION
     Dosage: 20 MG (UNKNOWN, UNKNOWN), ORAL
     Route: 048
     Dates: start: 20090105, end: 20090616
  5. ASPIRIN [Suspect]
     Indication: ABDOMINAL PAIN
     Dosage: (UNKNOWN, 3 IN 1 D), ORAL
     Route: 048
     Dates: start: 20090610, end: 20090612

REACTIONS (1)
  - GASTRIC ULCER PERFORATION [None]
